FAERS Safety Report 17847290 (Version 1)
Quarter: 2020Q2

REPORT INFORMATION
  Report Type: Spontaneous
  Country: US (occurrence: US)
  Receive Date: 20200601
  Receipt Date: 20200601
  Transmission Date: 20200714
  Serious: No
  Sender: FDA-Public Use
  Company Number: US-VERTEX PHARMACEUTICALS-2020-011671

PATIENT
  Sex: Male
  Weight: 31.2 kg

DRUGS (9)
  1. VITAMIN D3 [Concomitant]
     Active Substance: CHOLECALCIFEROL
     Dosage: 10(400)/ML
  2. ZYRTEC [Concomitant]
     Active Substance: CETIRIZINE HYDROCHLORIDE
  3. HYPERSAL [Concomitant]
     Active Substance: SODIUM CHLORIDE
     Dosage: VIAL-NEB
  4. MOTRIN IB [Concomitant]
     Active Substance: IBUPROFEN
  5. CYPROHEPTADINE HCL [Concomitant]
     Active Substance: CYPROHEPTADINE HYDROCHLORIDE
  6. PULMOZYME [Concomitant]
     Active Substance: DORNASE ALFA
  7. XOPENEX HFA [Concomitant]
     Active Substance: LEVALBUTEROL TARTRATE
     Dosage: HFA AER AD
  8. KALYDECO [Suspect]
     Active Substance: IVACAFTOR
     Indication: CYSTIC FIBROSIS
     Dosage: 150 MG, BID
     Route: 048
  9. FLONASE ALLERGY RELIEF [Concomitant]
     Active Substance: FLUTICASONE PROPIONATE

REACTIONS (2)
  - Abdominal pain [Unknown]
  - Headache [Unknown]
